FAERS Safety Report 5192315-7 (Version None)
Quarter: 2006Q4

REPORT INFORMATION
  Report Type: 
  Country: None (occurrence: None)
  Receive Date: 20061227
  Receipt Date: 20061215
  Transmission Date: 20070319
  Serious: Yes (Other)
  Sender: FDA-Public Use
  Company Number: US-PFIZER INC-2006154439

PATIENT
  Sex: Female

DRUGS (2)
  1. CELEBREX [Suspect]
     Indication: RHEUMATOID ARTHRITIS
     Dates: start: 20061130, end: 20061201
  2. PREDNISONE TAB [Suspect]
     Indication: RHEUMATOID ARTHRITIS

REACTIONS (1)
  - RASH ERYTHEMATOUS [None]
